FAERS Safety Report 4520902-5 (Version None)
Quarter: 2004Q4

REPORT INFORMATION
  Report Type: 
  Country: None (occurrence: None)
  Receive Date: 20041203
  Receipt Date: 20041123
  Transmission Date: 20050328
  Serious: Yes (Other)
  Sender: FDA-Public Use
  Company Number: SUSI-2004-00723

PATIENT
  Age: 20 Year
  Sex: Male

DRUGS (4)
  1. PENTASA [Suspect]
     Indication: CROHN'S DISEASE
     Dosage: 4 G DAILY, ORAL
     Route: 048
     Dates: start: 20040710, end: 20041020
  2. BUDESONIDE (BUDESONIDE) [Concomitant]
  3. DIDRONEL [Concomitant]
  4. CALCIUN CARBIMIDE (CALCIUM CARBIMIDE) [Concomitant]

REACTIONS (2)
  - ATRIAL FIBRILLATION [None]
  - PERICARDIAL EFFUSION [None]
